FAERS Safety Report 16887890 (Version 2)
Quarter: 2019Q4

REPORT INFORMATION
  Report Type: Report from Study
  Country: US (occurrence: US)
  Receive Date: 20191006
  Receipt Date: 20191104
  Transmission Date: 20200122
  Serious: Yes (Other)
  Sender: FDA-Public Use
  Company Number: US-ALEXION PHARMACEUTICALS INC.-A201915228

PATIENT
  Sex: Male

DRUGS (1)
  1. SOLIRIS [Suspect]
     Active Substance: ECULIZUMAB
     Indication: ATYPICAL HAEMOLYTIC URAEMIC SYNDROME
     Dosage: UNK, Q2W
     Route: 042
     Dates: start: 20190720

REACTIONS (6)
  - Deafness [Unknown]
  - Haemolysis [Unknown]
  - Laboratory test abnormal [Unknown]
  - Drug ineffective [Unknown]
  - Platelet count decreased [Unknown]
  - Red blood cell count decreased [Unknown]
